FAERS Safety Report 12708596 (Version 1)
Quarter: 2016Q3

REPORT INFORMATION
  Report Type: Spontaneous
  Country: NO (occurrence: NO)
  Receive Date: 20160901
  Receipt Date: 20160901
  Transmission Date: 20161109
  Serious: Yes (Other)
  Sender: FDA-Public Use
  Company Number: NO-SA-2016SA156502

PATIENT
  Sex: Male

DRUGS (2)
  1. CEREZYME [Suspect]
     Active Substance: IMIGLUCERASE
     Indication: GAUCHER^S DISEASE
     Dosage: 14 VIALS PER INFUSION PER MONTH DOSE:40 UNIT(S)/KILOGRAM BODYWEIGHT
     Route: 041
  2. CEREZYME [Suspect]
     Active Substance: IMIGLUCERASE
     Indication: GAUCHER^S DISEASE
     Dosage: DOSE:15 UNIT(S)/KILOGRAM BODYWEIGHT
     Route: 041

REACTIONS (4)
  - Splenomegaly [Unknown]
  - Liver disorder [Unknown]
  - Incorrect dose administered [Unknown]
  - Gallbladder disorder [Unknown]
